FAERS Safety Report 5571238-5 (Version None)
Quarter: 2007Q4

REPORT INFORMATION
  Report Type: 
  Country: None (occurrence: None)
  Receive Date: 20071221
  Receipt Date: 20070312
  Transmission Date: 20080405
  Serious: No
  Sender: FDA-Public Use
  Company Number: A0642657A

PATIENT
  Sex: Male
  Weight: 104.5 kg

DRUGS (6)
  1. FLUTICASONE PROPIONATE [Suspect]
     Indication: NASAL CONGESTION
     Dosage: 1SPR AT NIGHT
     Route: 045
     Dates: start: 20060901
  2. CAPTOPRIL [Concomitant]
  3. ATENOLOL [Concomitant]
  4. DOXEPIN HCL [Concomitant]
  5. DOXAZOSIN MESYLATE [Concomitant]
  6. ATACAND [Concomitant]

REACTIONS (1)
  - EPISTAXIS [None]
